FAERS Safety Report 5093796-X (Version None)
Quarter: 2006Q3

REPORT INFORMATION
  Report Type: 
  Country: None (occurrence: None)
  Receive Date: 20060831
  Receipt Date: 20060822
  Transmission Date: 20061208
  Serious: Yes (Other)
  Sender: FDA-Public Use
  Company Number: PHEH2006US10734

PATIENT
  Age: 35 Year
  Sex: Female

DRUGS (2)
  1. ZELNORM [Suspect]
     Dosage: 6 MG, BID
     Route: 048
  2. ZELNORM [Suspect]
     Dosage: 2 MG, UNK
     Route: 048

REACTIONS (2)
  - DIARRHOEA HAEMORRHAGIC [None]
  - ULCER [None]
